FAERS Safety Report 9201054 (Version 3)
Quarter: 2013Q2

REPORT INFORMATION
  Report Type: Spontaneous
  Country: DE (occurrence: DE)
  Receive Date: 20130401
  Receipt Date: 20130502
  Transmission Date: 20140414
  Serious: Yes (Other)
  Sender: FDA-Public Use
  Company Number: DE-UCBSA-081519

PATIENT
  Age: 35 Year
  Sex: Female
  Weight: 52 kg

DRUGS (3)
  1. CIMZIA [Suspect]
     Indication: RHEUMATOID ARTHRITIS
     Dosage: SINGLE APPLICATION
     Route: 058
     Dates: start: 20130102, end: 20130102
  2. ENBREL [Concomitant]
     Indication: JUVENILE IDIOPATHIC ARTHRITIS
     Route: 058
     Dates: start: 2009, end: 201212
  3. METHOTREXATE [Concomitant]
     Indication: RHEUMATOID ARTHRITIS
     Route: 058
     Dates: start: 2003

REACTIONS (3)
  - Psychotic disorder [Recovered/Resolved]
  - Anxiety disorder [Recovered/Resolved]
  - Hallucination, auditory [Recovered/Resolved]
